FAERS Safety Report 24235325 (Version 3)
Quarter: 2025Q3

REPORT INFORMATION
  Report Type: Report from Study
  Country: BR (occurrence: BR)
  Receive Date: 20240821
  Receipt Date: 20250802
  Transmission Date: 20251021
  Serious: Yes (Other)
  Sender: ALEXION PHARMACEUTICALS
  Company Number: 2024A190461

PATIENT
  Age: 74 Year
  Sex: Female

DRUGS (4)
  1. CRESTOR [Suspect]
     Active Substance: ROSUVASTATIN CALCIUM
     Indication: Blood cholesterol
     Dosage: ONCE
  2. ATACAND HCT [Suspect]
     Active Substance: CANDESARTAN CILEXETIL\HYDROCHLOROTHIAZIDE
     Indication: Hypertension
  3. NEXIUM [Suspect]
     Active Substance: ESOMEPRAZOLE MAGNESIUM
  4. AZD-1222 [Suspect]
     Active Substance: AZD-1222

REACTIONS (7)
  - Basal cell carcinoma [Unknown]
  - Hypertension [Unknown]
  - Intervertebral disc protrusion [Not Recovered/Not Resolved]
  - Lactose intolerance [Unknown]
  - Gastritis [Unknown]
  - Dizziness [Unknown]
  - Off label use [Not Recovered/Not Resolved]
